FAERS Safety Report 5254888-5 (Version None)
Quarter: 2007Q1

REPORT INFORMATION
  Report Type: 
  Country: None (occurrence: None)
  Receive Date: 20070305
  Receipt Date: 20070228
  Transmission Date: 20070707
  Serious: Yes (Death, Life-Threatening, Hospitalization, Other)
  Sender: FDA-Public Use
  Company Number: PHBS2006JP16304

PATIENT
  Age: 76 Year
  Sex: Male

DRUGS (4)
  1. ADALAT [Concomitant]
     Indication: HYPERTENSION
     Dosage: 40 MG/ DAY
     Route: 048
     Dates: start: 20050829, end: 20061016
  2. ACTOS [Concomitant]
     Indication: DIABETES MELLITUS
     Dosage: 15 MG/DAY
     Route: 048
     Dates: start: 20050829, end: 20061016
  3. LASIX [Concomitant]
     Indication: HYPERTENSION
     Dosage: 20 MG/DAY
     Route: 048
     Dates: start: 20050829, end: 20061016
  4. DIOVAN [Suspect]
     Indication: HYPERTENSION
     Dosage: 80 MG, TID
     Route: 048
     Dates: start: 20050825, end: 20061013

REACTIONS (17)
  - ACUTE RESPIRATORY FAILURE [None]
  - BLOOD ALKALINE PHOSPHATASE INCREASED [None]
  - BLOOD BICARBONATE INCREASED [None]
  - BLOOD LACTATE DEHYDROGENASE INCREASED [None]
  - C-REACTIVE PROTEIN INCREASED [None]
  - CELL MARKER INCREASED [None]
  - CHOKING SENSATION [None]
  - DYSPNOEA [None]
  - HYPERTENSION [None]
  - INFLAMMATION [None]
  - INTERSTITIAL LUNG DISEASE [None]
  - LUNG DISORDER [None]
  - OXYGEN SATURATION DECREASED [None]
  - PALPITATIONS [None]
  - PO2 DECREASED [None]
  - TRACHEOSTOMY [None]
  - WHITE BLOOD CELL COUNT INCREASED [None]
